FAERS Safety Report 16928811 (Version 1)
Quarter: 2019Q4

REPORT INFORMATION
  Report Type: Spontaneous
  Country: GB (occurrence: GB)
  Receive Date: 20191017
  Receipt Date: 20191017
  Transmission Date: 20200122
  Serious: Yes (Death)
  Sender: FDA-Public Use
  Company Number: GB-TEVA-2019-GB-1122522

PATIENT
  Age: 75 Year
  Sex: Male

DRUGS (12)
  1. AMITRIPTYLINE [Concomitant]
     Active Substance: AMITRIPTYLINE
  2. GLYCERYL TRINITRATE [Concomitant]
     Active Substance: NITROGLYCERIN
  3. PHENYTOIN. [Concomitant]
     Active Substance: PHENYTOIN
  4. CANDESARTAN. [Concomitant]
     Active Substance: CANDESARTAN
  5. CLOPIDOGREL [Suspect]
     Active Substance: CLOPIDOGREL BISULFATE
     Indication: ANTIPLATELET THERAPY
     Dosage: MORNING, 75 MG PER DAY
     Route: 048
     Dates: start: 20180918, end: 20190920
  6. ATORVASTATIN [Concomitant]
     Active Substance: ATORVASTATIN
  7. FENTANYL. [Concomitant]
     Active Substance: FENTANYL
  8. TEMAZEPAM. [Concomitant]
     Active Substance: TEMAZEPAM
  9. BISOPROLOL [Concomitant]
     Active Substance: BISOPROLOL
  10. APIXABAN [Suspect]
     Active Substance: APIXABAN
     Indication: ANTICOAGULANT THERAPY
     Dosage: 5 MG PER DAY
     Route: 048
     Dates: start: 20190919, end: 20190922
  11. ACETYLSALICYLIC ACID [Concomitant]
     Active Substance: ASPIRIN
  12. EPILIM [Concomitant]
     Active Substance: VALPROATE SODIUM

REACTIONS (3)
  - Cardiac arrest [Fatal]
  - Haemorrhage [Fatal]
  - Haematuria [Fatal]

NARRATIVE: CASE EVENT DATE: 20190918
